FAERS Safety Report 9749274 (Version 1)
Quarter: 2013Q4

REPORT INFORMATION
  Report Type: Spontaneous
  Country: US (occurrence: US)
  Receive Date: 20131212
  Receipt Date: 20131212
  Transmission Date: 20140711
  Serious: No
  Sender: FDA-Public Use
  Company Number: US-INCYTE CORPORATION-2013IN002566

PATIENT
  Age: 66 Year
  Sex: Female

DRUGS (2)
  1. JAKAFI [Suspect]
     Indication: MYELOFIBROSIS
     Dosage: 15 MG, BID
     Route: 048
     Dates: start: 201204, end: 20131015
  2. JAKAFI [Suspect]
     Dosage: 15 MG, QD
     Route: 048
     Dates: start: 20131016, end: 20131020

REACTIONS (6)
  - Nasopharyngitis [Unknown]
  - Pyrexia [Unknown]
  - Pain [Unknown]
  - Tinnitus [Unknown]
  - Asthenia [Unknown]
  - Drug dose omission [Unknown]
